FAERS Safety Report 5329805-X (Version None)
Quarter: 2007Q2

REPORT INFORMATION
  Report Type: 
  Country: None (occurrence: None)
  Receive Date: 20070521
  Receipt Date: 20070516
  Transmission Date: 20071010
  Serious: Yes (Other)
  Sender: FDA-Public Use
  Company Number: US-ASTRAZENECA-2007UW00378

PATIENT
  Age: 57 Year
  Sex: Female
  Weight: 95.5 kg

DRUGS (16)
  1. ARIMIDEX [Suspect]
     Indication: BREAST CANCER
     Route: 048
     Dates: start: 20041201, end: 20060926
  2. ASPIRIN [Concomitant]
  3. PEPCID AC [Concomitant]
     Indication: GASTROOESOPHAGEAL REFLUX DISEASE
     Dates: end: 20060830
  4. PRILOSEC [Concomitant]
  5. VOLTAREN [Concomitant]
     Indication: ARTHRALGIA
  6. MEDROL [Concomitant]
  7. CARDIOZYME [Concomitant]
  8. CARDIOTABS [Concomitant]
  9. CARDIOSTEROIDS [Concomitant]
  10. CATAPRES [Concomitant]
  11. LEXAPRO [Concomitant]
  12. LYRICA [Concomitant]
  13. SYNTHROID [Concomitant]
     Dates: start: 20060701
  14. TRILEPTAL [Concomitant]
  15. WARFARIN SODIUM [Concomitant]
  16. PROVIGIL [Concomitant]

REACTIONS (13)
  - ANTIPHOSPHOLIPID ANTIBODIES POSITIVE [None]
  - ANXIETY [None]
  - COLITIS ISCHAEMIC [None]
  - COSTOCHONDRITIS [None]
  - HEADACHE [None]
  - MUSCULOSKELETAL CHEST PAIN [None]
  - MUSCULOSKELETAL DISORDER [None]
  - NEPHROLITHIASIS [None]
  - SLEEP APNOEA SYNDROME [None]
  - THROMBOSIS [None]
  - TRANSIENT ISCHAEMIC ATTACK [None]
  - TUMOUR MARKER TEST [None]
  - VULVOVAGINAL DRYNESS [None]
